FAERS Safety Report 4621832-0 (Version None)
Quarter: 2005Q1

REPORT INFORMATION
  Report Type: 
  Country: None (occurrence: None)
  Receive Date: 20050329
  Receipt Date: 20031030
  Transmission Date: 20050727
  Serious: Yes (Hospitalization)
  Sender: FDA-Public Use
  Company Number: 9635

PATIENT
  Age: 29 Year
  Sex: Female

DRUGS (7)
  1. METHOTREXATE [Suspect]
     Indication: JUVENILE ARTHRITIS
     Dosage: 17.5 MG WEEKLY SC
     Route: 058
     Dates: start: 19970101, end: 20031021
  2. ENBREL [Suspect]
     Indication: JUVENILE ARTHRITIS
     Dosage: 25 MG 2/WK SC
     Route: 058
     Dates: start: 20021219, end: 20031020
  3. TIMOPTIC [Concomitant]
  4. ALPHAGAN [Concomitant]
  5. INFLAMASE MILD [Concomitant]
  6. PRED FORTE [Concomitant]
  7. FOLIC ACID [Concomitant]

REACTIONS (8)
  - BLOOD MAGNESIUM DECREASED [None]
  - CULTURE URINE POSITIVE [None]
  - CYSTITIS [None]
  - DEHYDRATION [None]
  - ESCHERICHIA INFECTION [None]
  - HAEMOGLOBIN DECREASED [None]
  - PYELONEPHRITIS ACUTE [None]
  - VOMITING [None]
